FAERS Safety Report 7074887-0 (Version None)
Quarter: 2010Q4

REPORT INFORMATION
  Report Type: 
  Country: None (occurrence: None)
  Receive Date: 20101029
  Receipt Date: 20101015
  Transmission Date: 20110411
  Serious: Yes (Death)
  Sender: FDA-Public Use
  Company Number: US-AMGEN-QUU443769

PATIENT

DRUGS (4)
  1. NPLATE [Suspect]
     Indication: IDIOPATHIC THROMBOCYTOPENIC PURPURA
     Dosage: UNK UNK, UNK
     Dates: start: 20090701
  2. NPLATE [Suspect]
     Dates: start: 20090701
  3. CORTICOSTEROID NOS [Concomitant]
     Dosage: UNK UNK, UNK
  4. IMMU-G [Concomitant]
     Dosage: UNK UNK, UNK
     Route: 042
     Dates: start: 20090626

REACTIONS (1)
  - RENAL FAILURE [None]
